FAERS Safety Report 6410222-6 (Version None)
Quarter: 2009Q4

REPORT INFORMATION
  Report Type: 
  Country: None (occurrence: None)
  Receive Date: 20091022
  Receipt Date: 20091013
  Transmission Date: 20100525
  Serious: Yes (Hospitalization)
  Sender: FDA-Public Use
  Company Number: PHHO2009FR12123

PATIENT
  Sex: Female

DRUGS (4)
  1. RAD 666 RAD+TAB [Suspect]
     Indication: ENDOMETRIAL CANCER METASTATIC
     Dosage: 10 MG, QD
     Route: 048
     Dates: start: 20090922, end: 20090930
  2. RAD 666 RAD+TAB [Suspect]
     Dosage: NO TREATMENT
     Dates: start: 20091001, end: 20091011
  3. RAD 666 RAD+TAB [Suspect]
     Dosage: UNK
     Route: 048
     Dates: start: 20091012
  4. PARACETAMOL [Concomitant]

REACTIONS (5)
  - DEHYDRATION [None]
  - DIARRHOEA [None]
  - FOOD INTOLERANCE [None]
  - RENAL FAILURE [None]
  - VOMITING [None]
